FAERS Safety Report 5067156-1 (Version None)
Quarter: 2006Q3

REPORT INFORMATION
  Report Type: 
  Country: None (occurrence: None)
  Receive Date: 20060801
  Receipt Date: 20060725
  Transmission Date: 20061208
  Serious: Yes (Hospitalization)
  Sender: FDA-Public Use
  Company Number: DE-BOEHRINGER INGELHEIM PHARMACEUTICALS, INC.-2006-DE-03915DE

PATIENT
  Age: 55 Year
  Sex: Male
  Weight: 100 kg

DRUGS (3)
  1. MICARDIS [Suspect]
     Indication: HYPERTENSION
     Dates: start: 20051101
  2. BELOC ZOK [Concomitant]
  3. ZOCOR [Concomitant]

REACTIONS (2)
  - BILE OUTPUT ABNORMAL [None]
  - GALLBLADDER DISORDER [None]
